FAERS Safety Report 10902532 (Version 2)
Quarter: 2015Q1

REPORT INFORMATION
  Report Type: Spontaneous
  Country: JP (occurrence: JP)
  Receive Date: 20150310
  Receipt Date: 20150310
  Transmission Date: 20150721
  Serious: Yes (Hospitalization, Other)
  Sender: FDA-Public Use
  Company Number: JP-WATSON-2015-04125

PATIENT
  Age: 48 Year
  Sex: Female

DRUGS (2)
  1. PHENYTOIN (AMALLC) [Suspect]
     Active Substance: PHENYTOIN
     Indication: EPILEPSY
     Dosage: UNK
     Route: 065
  2. VALPROIC ACID (UNKNOWN) [Suspect]
     Active Substance: VALPROIC ACID
     Indication: EPILEPSY
     Dosage: UNK
     Route: 065

REACTIONS (2)
  - Glomerulonephritis [Recovering/Resolving]
  - Renal failure [Recovering/Resolving]
